FAERS Safety Report 19250930 (Version 1)
Quarter: 2021Q2

REPORT INFORMATION
  Report Type: Spontaneous
  Country: US (occurrence: US)
  Receive Date: 20210512
  Receipt Date: 20210512
  Transmission Date: 20210717
  Serious: No
  Sender: FDA-Public Use
  Company Number: US-ELI_LILLY_AND_COMPANY-US202104012700

PATIENT
  Age: 24 Year
  Sex: Female

DRUGS (3)
  1. ETESEVIMAB 700MG [Suspect]
     Active Substance: ETESEVIMAB
     Indication: COVID-19
     Dosage: 1400 MG, SINGLE
     Route: 042
     Dates: start: 20210422, end: 20210422
  2. MELATONIN [Concomitant]
     Active Substance: MELATONIN
  3. BAMLANIVIMAB 700MG [Suspect]
     Active Substance: BAMLANIVIMAB
     Indication: COVID-19
     Dosage: 700 MG, SINGLE
     Route: 042
     Dates: start: 20210422, end: 20210422

REACTIONS (25)
  - Asthenia [Not Recovered/Not Resolved]
  - Nausea [Not Recovered/Not Resolved]
  - Sneezing [Unknown]
  - Fatigue [Not Recovered/Not Resolved]
  - Bowel movement irregularity [Not Recovered/Not Resolved]
  - Decreased appetite [Not Recovered/Not Resolved]
  - Pyrexia [Unknown]
  - Blood pressure abnormal [Unknown]
  - Chills [Recovered/Resolved]
  - Malaise [Not Recovered/Not Resolved]
  - Feeling hot [Recovered/Resolved]
  - Productive cough [Unknown]
  - Heart rate abnormal [Unknown]
  - Nasal congestion [Recovered/Resolved]
  - Confusional state [Unknown]
  - Neck pain [Recovering/Resolving]
  - Dizziness [Unknown]
  - Hyperhidrosis [Unknown]
  - Headache [Not Recovered/Not Resolved]
  - Vomiting [Not Recovered/Not Resolved]
  - Hypersensitivity [Unknown]
  - Back pain [Recovering/Resolving]
  - Pain [Not Recovered/Not Resolved]
  - Pain in extremity [Recovered/Resolved]
  - Myalgia [Unknown]

NARRATIVE: CASE EVENT DATE: 20210422
